FAERS Safety Report 6226918-5 (Version None)
Quarter: 2009Q2

REPORT INFORMATION
  Report Type: 
  Country: None (occurrence: None)
  Receive Date: 20090612
  Receipt Date: 20090523
  Transmission Date: 20091009
  Serious: No
  Sender: FDA-Public Use
  Company Number: US-ABBOTT-09P-163-0575815-00

PATIENT
  Sex: Female
  Weight: 59.02 kg

DRUGS (5)
  1. HUMIRA [Suspect]
     Indication: CROHN'S DISEASE
     Dosage: 80 MG INITITAL LOADING DOSE
     Dates: start: 20090522, end: 20090522
  2. VALIUM [Concomitant]
     Indication: DRUG USE FOR UNKNOWN INDICATION
  3. DILAUDID [Concomitant]
     Indication: DRUG USE FOR UNKNOWN INDICATION
  4. PHENERGAN [Concomitant]
     Indication: DRUG USE FOR UNKNOWN INDICATION
  5. UNKNOWN ANTIDEPRESSANTS [Concomitant]
     Indication: DRUG USE FOR UNKNOWN INDICATION

REACTIONS (1)
  - PYREXIA [None]
